FAERS Safety Report 15478158 (Version 4)
Quarter: 2018Q4

REPORT INFORMATION
  Report Type: Spontaneous
  Country: KR (occurrence: KR)
  Receive Date: 20181009
  Receipt Date: 20181012
  Transmission Date: 20190205
  Serious: Yes (Other)
  Sender: FDA-Public Use
  Company Number: PHHY2018KR117493

PATIENT
  Age: 65 Year
  Sex: Male

DRUGS (6)
  1. ACETYL L-CARNITINE [Suspect]
     Active Substance: ACETYLCARNITINE
     Indication: GOUT
     Dosage: 200 MG, QD
     Route: 065
  2. PARACETAMOL [Suspect]
     Active Substance: ACETAMINOPHEN
     Indication: GOUT
     Dosage: 1300 MG, QD
     Route: 065
  3. PREDNISOLONE. [Suspect]
     Active Substance: PREDNISOLONE
     Indication: GOUT
     Dosage: 10 MG, QD
     Route: 065
  4. FERROUS SULFATE. [Concomitant]
     Active Substance: FERROUS SULFATE
     Indication: GOUT
     Dosage: 256 MG, QD
     Route: 065
  5. ALLOPURINOL. [Suspect]
     Active Substance: ALLOPURINOL
     Indication: GOUT
     Dosage: 100 MG, QD
     Route: 065
  6. REBAMIPIDE [Suspect]
     Active Substance: REBAMIPIDE
     Indication: GOUT
     Dosage: 300 MG, QD
     Route: 065

REACTIONS (2)
  - Liver injury [Recovering/Resolving]
  - Hepatic enzyme increased [Recovering/Resolving]
